FAERS Safety Report 19183022 (Version 1)
Quarter: 2021Q2

REPORT INFORMATION
  Report Type: Report from Study
  Country: GR (occurrence: GR)
  Receive Date: 20210427
  Receipt Date: 20210427
  Transmission Date: 20210717
  Serious: Yes (Hospitalization, Other)
  Sender: FDA-Public Use
  Company Number: GR-UCBSA-2021018435

PATIENT
  Age: 60 Year
  Sex: Male

DRUGS (1)
  1. CERTOLIZUMAB PEGOL [Suspect]
     Active Substance: CERTOLIZUMAB PEGOL
     Indication: ANKYLOSING SPONDYLITIS
     Dosage: 200 MILLIGRAM, EV 2 WEEKS(QOW)
     Dates: end: 202102

REACTIONS (5)
  - Weight decreased [Unknown]
  - Lipoma [Unknown]
  - Gastrointestinal pain [Unknown]
  - Abdominal discomfort [Unknown]
  - Ileus [Unknown]

NARRATIVE: CASE EVENT DATE: 202012
